FAERS Safety Report 10023840 (Version 1)
Quarter: 2014Q1

REPORT INFORMATION
  Report Type: Spontaneous
  Country: US (occurrence: None)
  Receive Date: 20140319
  Receipt Date: 20140319
  Transmission Date: 20141002
  Serious: Yes (Life-Threatening, Hospitalization)
  Sender: FDA-Public Use
  Company Number: None

PATIENT
  Age: 57 Year
  Sex: Female
  Weight: 70.31 kg

DRUGS (11)
  1. OLANZAPINE [Suspect]
     Indication: MANIA
     Route: 048
  2. OLANZAPINE [Suspect]
     Indication: BIPOLAR II DISORDER
     Route: 048
  3. XARELTO [Concomitant]
  4. PAROXETINE [Concomitant]
  5. LOTRONEX [Concomitant]
  6. METOPROLOL [Concomitant]
  7. AMBIEN [Concomitant]
  8. CALCIUM [Concomitant]
  9. MAGNESIUM [Concomitant]
  10. OMEGA 3 [Concomitant]
  11. COQ10 [Concomitant]

REACTIONS (3)
  - Loss of consciousness [None]
  - Fall [None]
  - Pain [None]
